FAERS Safety Report 8676629 (Version 2)
Quarter: 2012Q4

REPORT INFORMATION
  Report Type: Report from Study
  Country: CA (occurrence: CA)
  Receive Date: 20120913
  Receipt Date: 20121228
  Transmission Date: 20130627
  Serious: Yes (Hospitalization, Disabling, Other)
  Sender: FDA-Public Use
  Company Number: CA-MSD-1006USA03048

PATIENT
  Age: 82 Year
  Sex: Female
  Weight: 52 kg

DRUGS (9)
  1. SIMVASTATIN [Suspect]
     Indication: ACUTE CORONARY SYNDROME
     Dosage: 40 mg, qd
     Route: 048
     Dates: start: 20081106
  2. FOLIC ACID [Concomitant]
     Dosage: UNK
     Route: 048
     Dates: start: 20000101
  3. TRAZODONE HYDROCHLORIDE [Concomitant]
     Dosage: UNK UNK, hs
     Route: 048
     Dates: start: 20000101
  4. CITALOPRAM [Concomitant]
     Dosage: UNK
     Route: 048
     Dates: start: 20000101
  5. METOPROLOL [Concomitant]
     Dosage: UNK
     Route: 048
     Dates: start: 20081106
  6. RAMIPRIL [Concomitant]
     Dosage: UNK
     Route: 048
     Dates: start: 20081106
  7. ASPIRIN [Concomitant]
     Dosage: UNK
     Route: 048
     Dates: start: 20081106
  8. LEVOTHYROXINE SODIUM [Concomitant]
     Dosage: UNK
     Route: 048
     Dates: start: 19800101
  9. LORAZEPAM [Concomitant]
     Dosage: UNK
     Route: 048
     Dates: start: 20000101

REACTIONS (2)
  - Dysphagia [Recovered/Resolved]
  - Throat lesion [Not Recovered/Not Resolved]
